FAERS Safety Report 11533976 (Version 2)
Quarter: 2019Q1

REPORT INFORMATION
  Report Type: Spontaneous
  Country: CA (occurrence: CA)
  Receive Date: 20150922
  Receipt Date: 20190220
  Transmission Date: 20190417
  Serious: Yes (Other)
  Sender: FDA-Public Use
  Company Number: CA-PFIZER INC-2015304987

PATIENT
  Age: 34 Year
  Sex: Female

DRUGS (5)
  1. CARBOPLATIN. [Suspect]
     Active Substance: CARBOPLATIN
     Indication: BORDERLINE SEROUS TUMOUR OF OVARY
     Dosage: UNK
     Route: 065
  2. PACLITAXEL. [Suspect]
     Active Substance: PACLITAXEL
     Indication: BORDERLINE SEROUS TUMOUR OF OVARY
     Dosage: UNK
     Route: 065
  3. CISPLATIN. [Suspect]
     Active Substance: CISPLATIN
     Indication: BORDERLINE SEROUS TUMOUR OF OVARY
     Dosage: UNK
     Route: 065
  4. DOXORUBICIN HCL [Suspect]
     Active Substance: DOXORUBICIN HYDROCHLORIDE
     Indication: BORDERLINE SEROUS TUMOUR OF OVARY
     Dosage: UNK
     Route: 065
  5. PROCYTOX [Suspect]
     Active Substance: CYCLOPHOSPHAMIDE
     Indication: BORDERLINE SEROUS TUMOUR OF OVARY
     Dosage: UNK (200 MG/VIAL)
     Route: 065

REACTIONS (4)
  - Gastrointestinal toxicity [Recovered/Resolved]
  - Hydronephrosis [Recovered/Resolved]
  - Neoplasm progression [Recovered/Resolved]
  - Bladder perforation [Recovered/Resolved]
